FAERS Safety Report 19640602 (Version 2)
Quarter: 2021Q3

REPORT INFORMATION
  Report Type: Spontaneous
  Country: SE (occurrence: SE)
  Receive Date: 20210730
  Receipt Date: 20210827
  Transmission Date: 20211014
  Serious: Yes (Hospitalization)
  Sender: FDA-Public Use
  Company Number: SE-MALLINCKRODT PHARMACEUTICALS-T202103353

PATIENT
  Sex: Female

DRUGS (2)
  1. UVADEX [Suspect]
     Active Substance: METHOXSALEN
     Indication: KIDNEY TRANSPLANT REJECTION
     Dosage: UNK, 5 ECP TREATMENTS, BIW (EXTRACORPOREAL)
     Route: 050
     Dates: start: 20210707
  2. ACDA [Concomitant]
     Indication: ANTICOAGULANT THERAPY
     Dosage: UNK
     Route: 065

REACTIONS (1)
  - Cholecystitis [Unknown]

NARRATIVE: CASE EVENT DATE: 20210721
